FAERS Safety Report 8770046 (Version 1)
Quarter: 2012Q4

REPORT INFORMATION
  Report Type: 
  Country: US (occurrence: US)
  Receive Date: 20120905
  Receipt Date: 20120905
  Transmission Date: 20130627
  Serious: Yes (Other)
  Sender: FDA-Public Use
  Company Number: US-AMGEN-USASP2012055438

PATIENT
  Sex: Female

DRUGS (3)
  1. ENBREL [Suspect]
     Indication: RHEUMATOID ARTHRITIS
     Dosage: 50 UNK, qwk
     Dates: start: 20090715, end: 20120721
  2. METHOTREXATE [Concomitant]
     Dosage: 17.5 UNK, UNK
     Dates: start: 20070615
  3. PLAQUENIL                          /00072603/ [Concomitant]
     Dosage: 200 UNK, UNK

REACTIONS (4)
  - Diabetes mellitus [Not Recovered/Not Resolved]
  - Hypertension [Unknown]
  - Rheumatoid arthritis [Unknown]
  - Urinary tract infection [Unknown]
